FAERS Safety Report 6507299-6 (Version None)
Quarter: 2009Q4

REPORT INFORMATION
  Report Type: 
  Country: None (occurrence: None)
  Receive Date: 20091221
  Receipt Date: 20091216
  Transmission Date: 20100525
  Serious: Yes (Hospitalization, Other)
  Sender: FDA-Public Use
  Company Number: PHHO2004CN07835

PATIENT
  Sex: Male
  Weight: 61.4 kg

DRUGS (4)
  1. VALSARTAN [Suspect]
     Dosage: LEVEL 1
     Route: 048
     Dates: start: 20020530
  2. NATEGLINIDE [Suspect]
     Dosage: LEVEL 2
     Route: 048
  3. PLACEBO PLACEBO [Suspect]
     Indication: CARDIOVASCULAR DISORDER
     Dosage: LEVEL 1
     Route: 048
     Dates: start: 20020530
  4. PLACEBO PLACEBO [Suspect]
     Dosage: LEVEL 2
     Route: 048

REACTIONS (5)
  - COUGH [None]
  - PNEUMONIA [None]
  - PRODUCTIVE COUGH [None]
  - RENAL FAILURE CHRONIC [None]
  - RENAL IMPAIRMENT [None]
